FAERS Safety Report 8248566-8 (Version None)
Quarter: 2012Q1

REPORT INFORMATION
  Report Type: 
  Country: None (occurrence: None)
  Receive Date: 20120330
  Receipt Date: 20120316
  Transmission Date: 20120608
  Serious: Yes (Hospitalization)
  Sender: FDA-Public Use
  Company Number: FR-CELGENEUS-056-21880-12013165

PATIENT
  Sex: Male

DRUGS (12)
  1. BORTEZOMIB [Suspect]
     Indication: MULTIPLE MYELOMA
     Dosage: 2.353 MILLIGRAM
     Route: 065
     Dates: start: 20120119, end: 20120123
  2. DEXAMETHASONE [Suspect]
     Dosage: 20 MILLIGRAM
     Route: 065
     Dates: start: 20120213, end: 20120220
  3. BORTEZOMIB [Suspect]
     Dosage: 2.353 MILLIGRAM
     Route: 065
     Dates: start: 20120213, end: 20120220
  4. BACTRIM [Concomitant]
     Indication: PROPHYLAXIS
     Route: 048
     Dates: start: 20120119
  5. REVLIMID [Suspect]
     Indication: MULTIPLE MYELOMA
     Dosage: 25 MILLIGRAM
     Route: 048
     Dates: start: 20120119, end: 20120125
  6. DEXAMETHASONE [Suspect]
     Indication: MULTIPLE MYELOMA
     Dosage: 20 MILLIGRAM
     Route: 065
     Dates: start: 20120119, end: 20120123
  7. VALACYCLOVIR HYDROCHLORIDE [Concomitant]
     Indication: PROPHYLAXIS
     Route: 048
     Dates: start: 20120119
  8. AMOXICILLIN TRIHYDRATE [Concomitant]
     Indication: PROPHYLAXIS
     Dosage: 2 GRAM
     Route: 065
     Dates: start: 20120123
  9. REVLIMID [Suspect]
     Dosage: 25 MILLIGRAM
     Route: 048
     Dates: start: 20120213, end: 20120220
  10. INNOHEP [Concomitant]
     Indication: PROPHYLAXIS
     Route: 065
     Dates: start: 20120119
  11. DURAGESIC-100 [Concomitant]
     Indication: PAIN
     Route: 062
     Dates: start: 20120119
  12. OXYCODONE HCL [Concomitant]
     Indication: PAIN
     Dosage: 10 MILLIGRAM
     Route: 048
     Dates: start: 20120119

REACTIONS (2)
  - PYREXIA [None]
  - LUNG DISORDER [None]
